FAERS Safety Report 7859984 (Version 5)
Quarter: 2013Q1

REPORT INFORMATION
  Report Type: Spontaneous
  Country: HU (occurrence: HU)
  Receive Date: 20110317
  Receipt Date: 20130109
  Transmission Date: 20140127
  Serious: Yes (Death, Hospitalization, Other)
  Sender: FDA-Public Use
  Company Number: HU-AMGEN-HUNSP2011012826

PATIENT
  Age: 51 Year
  Sex: Male
  Weight: 99 kg

DRUGS (2)
  1. VECTIBIX [Suspect]
     Indication: METASTASES TO LUNG
     Dosage: 6 MG, Q2WK
     Dates: start: 20101110, end: 20110202
  2. METFORMIN [Concomitant]
     Dosage: UNK

REACTIONS (7)
  - Malignant neoplasm progression [Fatal]
  - Gangrene [Recovered/Resolved]
  - Skin reaction [Unknown]
  - Toe amputation [Unknown]
  - Pyrexia [Unknown]
  - Acne [Unknown]
  - Impaired healing [Unknown]
